FAERS Safety Report 5624708-5 (Version None)
Quarter: 2008Q1

REPORT INFORMATION
  Report Type: 
  Country: None (occurrence: None)
  Receive Date: 20080213
  Receipt Date: 20080210
  Transmission Date: 20080703
  Serious: Yes (Hospitalization)
  Sender: FDA-Public Use
  Company Number: B0507554A

PATIENT
  Age: 74 Year
  Sex: Female

DRUGS (6)
  1. LAMICTAL [Suspect]
     Indication: EPILEPSY
     Dosage: 75MG PER DAY
     Route: 048
     Dates: start: 20071214, end: 20080108
  2. NORVASC [Concomitant]
     Indication: HYPERTENSION
  3. COZAAR [Concomitant]
     Indication: HYPERTENSION
  4. LEVOTHYROXINE SODIUM [Concomitant]
     Indication: HYPOTHYROIDISM
  5. CARVEDILOL [Concomitant]
     Indication: HYPERTENSION
  6. ZOCOR [Concomitant]

REACTIONS (4)
  - LIP SWELLING [None]
  - MUCOSA VESICLE [None]
  - RASH MACULO-PAPULAR [None]
  - SWOLLEN TONGUE [None]
